FAERS Safety Report 19797757 (Version 1)
Quarter: 2021Q3

REPORT INFORMATION
  Report Type: Spontaneous
  Country: US (occurrence: US)
  Receive Date: 20210905
  Receipt Date: 20210905
  Transmission Date: 20211014
  Serious: No
  Sender: FDA-Public Use
  Company Number: None

PATIENT
  Age: 51 Year
  Sex: Female

DRUGS (3)
  1. CARBOPLATIN. [Concomitant]
     Active Substance: CARBOPLATIN
  2. TRASTUZUMAB/PERTUZUMAB [Concomitant]
  3. DOCETAXEL. [Suspect]
     Active Substance: DOCETAXEL
     Dates: start: 20210706

REACTIONS (4)
  - Chest discomfort [None]
  - Flushing [None]
  - Infusion related reaction [None]
  - Hypoxia [None]

NARRATIVE: CASE EVENT DATE: 20210706
